FAERS Safety Report 12112425 (Version 3)
Quarter: 2016Q2

REPORT INFORMATION
  Report Type: Spontaneous
  Country: JP (occurrence: JP)
  Receive Date: 20160225
  Receipt Date: 20160526
  Transmission Date: 20160815
  Serious: Yes (Life-Threatening)
  Sender: FDA-Public Use
  Company Number: JP-AMGEN-JPNSP2016022914

PATIENT
  Age: 84 Year
  Sex: Male
  Weight: 61 kg

DRUGS (16)
  1. BLOPRESS [Concomitant]
     Active Substance: CANDESARTAN CILEXETIL
     Indication: HYPERTENSION
     Dosage: 2 MG, QD
     Route: 048
     Dates: start: 20081205
  2. G-LASTA [Suspect]
     Active Substance: PEGFILGRASTIM
     Indication: NEUTROPHIL COUNT DECREASED
     Dosage: 3.6 MG, QD
     Route: 058
     Dates: start: 20160201, end: 20160201
  3. AMOBAN [Concomitant]
     Active Substance: ZOPICLONE
     Indication: INSOMNIA
     Dosage: 7.5 MG, QD
     Route: 048
     Dates: start: 20090831
  4. ATP                                /00090104/ [Concomitant]
     Indication: DIZZINESS
     Dosage: 20 MG, TID
     Route: 048
  5. ALIMTA [Suspect]
     Active Substance: PEMETREXED DISODIUM
     Indication: LUNG ADENOCARCINOMA
     Dosage: 664.4 MG, 1X/4WEEKS
     Route: 041
     Dates: start: 20151204
  6. ALOXI [Concomitant]
     Active Substance: PALONOSETRON HYDROCHLORIDE
     Indication: LUNG ADENOCARCINOMA
     Dosage: 0.75 MG, 1X/4WEEKS
     Route: 041
     Dates: start: 20151204, end: 20160129
  7. DEXART [Concomitant]
     Active Substance: DEXAMETHASONE SODIUM PHOSPHATE
     Indication: LUNG ADENOCARCINOMA
     Dosage: 6.6 MG, 1X/4WEEKS
     Route: 041
     Dates: start: 20151204
  8. EMEND [Concomitant]
     Active Substance: APREPITANT
     Dosage: 12 MG, QD
     Route: 048
     Dates: start: 20151204, end: 20160129
  9. EMEND [Concomitant]
     Active Substance: APREPITANT
     Dosage: 8 MG, BID
     Route: 048
     Dates: start: 20151205, end: 20160131
  10. TENORMIN [Concomitant]
     Active Substance: ATENOLOL
     Indication: HYPERTENSION
     Dosage: 25 MG, QD
     Route: 048
     Dates: start: 20090109
  11. METHYCOBAL [Concomitant]
     Active Substance: METHYLCOBALAMIN
     Indication: PROPHYLAXIS
     Dosage: 1000 MCG, ONCE EVERY 3 MONTH
     Route: 030
     Dates: start: 20151127
  12. FLUITRAN [Concomitant]
     Active Substance: TRICHLORMETHIAZIDE
     Indication: HYPERTENSION
     Dosage: 1 MG, QOD
     Route: 048
     Dates: start: 20081205
  13. PANVITAN                           /05664501/ [Concomitant]
     Indication: PROPHYLAXIS
     Dosage: 1 G, QD
     Route: 048
     Dates: start: 20151127
  14. MAGMITT [Concomitant]
     Active Substance: MAGNESIUM OXIDE
     Dosage: 330 MG, BID
     Route: 048
     Dates: start: 20151210
  15. PARAPLATIN [Suspect]
     Active Substance: CARBOPLATIN
     Indication: LUNG ADENOCARCINOMA
     Dosage: 367 MG, 1X/4WEEKS
     Route: 041
     Dates: start: 20151204, end: 20160129
  16. PANTETHINE [Concomitant]
     Active Substance: PANTETHINE
     Dosage: 100 MG, BID
     Route: 048
     Dates: start: 20151210

REACTIONS (1)
  - Systemic inflammatory response syndrome [Recovered/Resolved]

NARRATIVE: CASE EVENT DATE: 20160207
